FAERS Safety Report 11744034 (Version 1)
Quarter: 2015Q4

REPORT INFORMATION
  Report Type: Spontaneous
  Country: US (occurrence: US)
  Receive Date: 20151116
  Receipt Date: 20151116
  Transmission Date: 20160304
  Serious: No
  Sender: FDA-Public Use
  Company Number: US-GALDERMA-US15002252

PATIENT
  Age: 48 Year
  Sex: Female

DRUGS (1)
  1. CAPEX [Suspect]
     Active Substance: FLUOCINOLONE ACETONIDE
     Indication: SARCOIDOSIS
     Dosage: 0.01%
     Route: 061

REACTIONS (1)
  - Product use issue [Recovered/Resolved]
